FAERS Safety Report 10066131 (Version 1)
Quarter: 2014Q2

REPORT INFORMATION
  Report Type: Spontaneous
  Country: US (occurrence: US)
  Receive Date: 20140408
  Receipt Date: 20140408
  Transmission Date: 20141212
  Serious: No
  Sender: FDA-Public Use
  Company Number: US-PFIZER INC-2014097001

PATIENT
  Age: 58 Year
  Sex: Female
  Weight: 88.44 kg

DRUGS (4)
  1. PRISTIQ [Suspect]
     Indication: DEPRESSION
     Dosage: 100 MG, DAILY
  2. PRISTIQ [Suspect]
     Dosage: 150 MG, DAILY
  3. PRISTIQ [Suspect]
     Dosage: UNK
  4. PRISTIQ [Suspect]
     Dosage: 100 MG, DAILY

REACTIONS (1)
  - Drug ineffective [Unknown]
